FAERS Safety Report 9910754 (Version 3)
Quarter: 2015Q3

REPORT INFORMATION
  Report Type: Spontaneous
  Country: US (occurrence: US)
  Receive Date: 20140219
  Receipt Date: 20150811
  Transmission Date: 20151125
  Serious: No
  Sender: FDA-Public Use
  Company Number: US-GILEAD-2012-0053808

PATIENT
  Age: 66 Year
  Sex: Female
  Weight: 58.96 kg

DRUGS (10)
  1. RHINOCORT AQUA [Concomitant]
     Active Substance: BUDESONIDE
  2. LASIX [Concomitant]
     Active Substance: FUROSEMIDE
  3. ACTONEL [Concomitant]
     Active Substance: RISEDRONATE SODIUM
  4. LETAIRIS [Suspect]
     Active Substance: AMBRISENTAN
     Indication: PULMONARY HYPERTENSION
     Dosage: 10 MG, UNK
     Route: 048
     Dates: start: 20120221
  5. NORVASC [Concomitant]
     Active Substance: AMLODIPINE BESYLATE
  6. ARAVA [Concomitant]
     Active Substance: LEFLUNOMIDE
  7. MOBIC [Concomitant]
     Active Substance: MELOXICAM
  8. PREDNISONE. [Concomitant]
     Active Substance: PREDNISONE
  9. AMOXICILLIN AND CLAVULANATE POTASSIUM [Concomitant]
     Active Substance: AMOXICILLIN\CLAVULANATE POTASSIUM
  10. OXYGEN. [Concomitant]
     Active Substance: OXYGEN

REACTIONS (2)
  - Infection [Unknown]
  - Fall [Unknown]
